FAERS Safety Report 5657289-0 (Version None)
Quarter: 2008Q1

REPORT INFORMATION
  Report Type: 
  Country: None (occurrence: None)
  Receive Date: 20080307
  Receipt Date: 20080307
  Transmission Date: 20080703
  Serious: Yes (Hospitalization)
  Sender: FDA-Public Use
  Company Number: None

PATIENT
  Sex: Female
  Weight: 32.72 kg

DRUGS (3)
  1. CISPLATIN [Suspect]
     Dosage: 61 MG
  2. NAVELBINE [Suspect]
     Dosage: 37 MG
  3. ATIVAN [Concomitant]

REACTIONS (4)
  - DYSSTASIA [None]
  - FALL [None]
  - HIP FRACTURE [None]
  - PAIN [None]
